FAERS Safety Report 5378365-6 (Version None)
Quarter: 2007Q3

REPORT INFORMATION
  Report Type: 
  Country: None (occurrence: None)
  Receive Date: 20070702
  Receipt Date: 20070702
  Transmission Date: 20080115
  Serious: Yes (Hospitalization)
  Sender: FDA-Public Use
  Company Number: None

PATIENT
  Sex: Male
  Weight: 61.9 kg

DRUGS (11)
  1. CISPLATIN [Suspect]
     Dosage: 184 MG
     Dates: end: 20070530
  2. DOCUSATE [Concomitant]
  3. DURAGESIC-100 [Concomitant]
  4. ACETAMINOPHEN AND HYDROCODONE BITARTRATE [Concomitant]
  5. MAGNESIUM SULFATE [Concomitant]
  6. METOCLOPRAMIDE [Concomitant]
  7. ONDASETRON [Concomitant]
  8. PHENERGAN HCL [Concomitant]
  9. SENNA [Concomitant]
  10. SENNOSIDES [Concomitant]
  11. ALUMINUM + MAGNESIUM HYDROXIDE [Concomitant]

REACTIONS (8)
  - ERYTHEMA [None]
  - FEBRILE NEUTROPENIA [None]
  - FEEDING TUBE COMPLICATION [None]
  - HAEMOPTYSIS [None]
  - LOCAL SWELLING [None]
  - PRODUCTIVE COUGH [None]
  - PURULENCE [None]
  - SKIN ULCER [None]
